FAERS Safety Report 7960910-5 (Version None)
Quarter: 2011Q4

REPORT INFORMATION
  Report Type: 
  Country: None (occurrence: None)
  Receive Date: 20111201
  Receipt Date: 20111123
  Transmission Date: 20120403
  Serious: Yes (Disabling)
  Sender: FDA-Public Use
  Company Number: 1116008

PATIENT
  Sex: Male
  Weight: 127.4 kg

DRUGS (3)
  1. NIPENT [Suspect]
     Indication: CHRONIC LYMPHOCYTIC LEUKAEMIA
     Dosage: 10 MG, NOT REPORTED
     Dates: start: 20110901, end: 20110901
  2. (RITUXIMAB) [Suspect]
     Indication: CHRONIC LYMPHOCYTIC LEUKAEMIA
     Dosage: 945 MG, NOT REPORTED
     Dates: start: 20110901, end: 20110901
  3. CYCLOPHOSPHAMIDE [Suspect]
     Indication: CHRONIC LYMPHOCYTIC LEUKAEMIA
     Dosage: 1512 MG, NOT REPORTED
     Dates: start: 20110901, end: 20110901

REACTIONS (10)
  - CONNECTIVE TISSUE DISORDER [None]
  - POLYMYOSITIS [None]
  - MASTICATION DISORDER [None]
  - BLOOD LACTATE DEHYDROGENASE INCREASED [None]
  - ALANINE AMINOTRANSFERASE INCREASED [None]
  - DYSPHAGIA [None]
  - MUSCULAR WEAKNESS [None]
  - ASPARTATE AMINOTRANSFERASE INCREASED [None]
  - MUSCULOSKELETAL DISORDER [None]
  - BLOOD URIC ACID INCREASED [None]
